FAERS Safety Report 8076129-6 (Version None)
Quarter: 2012Q1

REPORT INFORMATION
  Report Type: 
  Country: None (occurrence: None)
  Receive Date: 20120127
  Receipt Date: 20111005
  Transmission Date: 20120608
  Serious: No
  Sender: FDA-Public Use
  Company Number: US-GLAXOSMITHKLINE-A0948491A

PATIENT
  Sex: Female

DRUGS (3)
  1. WELLBUTRIN SR [Concomitant]
     Indication: PRODUCT USED FOR UNKNOWN INDICATION
     Dosage: 150MG TWICE PER DAY
     Route: 048
  2. WELLBUTRIN [Suspect]
     Indication: PRODUCT USED FOR UNKNOWN INDICATION
     Route: 048
  3. BUPROPION HCL [Suspect]
     Indication: PRODUCT USED FOR UNKNOWN INDICATION
     Route: 065

REACTIONS (2)
  - DRUG INEFFECTIVE [None]
  - HYPERSENSITIVITY [None]
